FAERS Safety Report 10204431 (Version 1)
Quarter: 2014Q2

REPORT INFORMATION
  Report Type: Spontaneous
  Country: US (occurrence: US)
  Receive Date: 20140529
  Receipt Date: 20140529
  Transmission Date: 20141212
  Serious: No
  Sender: FDA-Public Use
  Company Number: US-SANOFI-AVENTIS-2013SA061165

PATIENT
  Sex: Female

DRUGS (4)
  1. LANTUS [Suspect]
     Route: 051
  2. LANTUS SOLOSTAR [Suspect]
     Route: 051
  3. SOLOSTAR [Suspect]
  4. METFORMIN [Concomitant]

REACTIONS (5)
  - Impaired work ability [Unknown]
  - Headache [Unknown]
  - Nightmare [Unknown]
  - Hyperhidrosis [Unknown]
  - Blood glucose increased [Unknown]
